FAERS Safety Report 15477213 (Version 3)
Quarter: 2019Q1

REPORT INFORMATION
  Report Type: Spontaneous
  Country: US (occurrence: US)
  Receive Date: 20181009
  Receipt Date: 20190327
  Transmission Date: 20190417
  Serious: No
  Sender: FDA-Public Use
  Company Number: US-PFIZER INC-2018404601

PATIENT
  Age: 79 Year
  Sex: Female
  Weight: 77.55 kg

DRUGS (1)
  1. IBRANCE [Suspect]
     Active Substance: PALBOCICLIB
     Indication: BREAST CANCER METASTATIC
     Dosage: 75 MG, CYCLIC [DAYS 1-21 Q 28 DAYS]
     Route: 048
     Dates: start: 201612, end: 20190218

REACTIONS (2)
  - Neoplasm progression [Unknown]
  - Full blood count decreased [Unknown]
